FAERS Safety Report 19345245 (Version 1)
Quarter: 2021Q2

REPORT INFORMATION
  Report Type: Spontaneous
  Country: US (occurrence: US)
  Receive Date: 20210531
  Receipt Date: 20210531
  Transmission Date: 20210717
  Serious: No
  Sender: FDA-Public Use
  Company Number: US-PURDUE-USA-2020-0190659

PATIENT
  Sex: Female

DRUGS (1)
  1. OXYCONTIN [Suspect]
     Active Substance: OXYCODONE HYDROCHLORIDE
     Indication: EXPOSURE VIA PARTNER
     Dosage: UNKNOWN DOSE
     Route: 050

REACTIONS (2)
  - Maternal exposure during pregnancy [Recovered/Resolved]
  - Exposure via partner [Unknown]
